FAERS Safety Report 6402959-X (Version None)
Quarter: 2009Q4

REPORT INFORMATION
  Report Type: 
  Country: None (occurrence: None)
  Receive Date: 20091016
  Receipt Date: 20091001
  Transmission Date: 20100525
  Serious: Yes (Hospitalization)
  Sender: FDA-Public Use
  Company Number: US-BAYER-00/06345-USE

PATIENT
  Age: 52 Year
  Sex: Female
  Weight: 47 kg

DRUGS (6)
  1. BETASERON [Suspect]
     Indication: MULTIPLE SCLEROSIS
     Dosage: TOTAL DAILY DOSE: 8 MIU
     Route: 058
     Dates: start: 19970701
  2. ^VARIOUS ANTIBIOTICS^ [Concomitant]
  3. TYLENOL (CAPLET) [Concomitant]
  4. MOTRIN [Concomitant]
  5. BACLOFEN [Concomitant]
     Indication: MUSCLE SPASMS
     Dosage: UNK, UNK
     Dates: start: 19970801
  6. SYNTHROID [Concomitant]
     Indication: THYROID DISORDER
     Dosage: UNK, UNK
     Dates: start: 20000501

REACTIONS (5)
  - CHILLS [None]
  - INJECTION SITE ABSCESS [None]
  - INJECTION SITE INFECTION [None]
  - PAIN [None]
  - PYREXIA [None]
